FAERS Safety Report 11409711 (Version 1)
Quarter: 2015Q3

REPORT INFORMATION
  Report Type: Spontaneous
  Country: US (occurrence: US)
  Receive Date: 20150824
  Receipt Date: 20150824
  Transmission Date: 20151125
  Serious: Yes (Hospitalization)
  Sender: FDA-Public Use
  Company Number: US-TARO PHARMACEUTICALS USA.,INC-2015SUN01838

PATIENT
  Age: 93 Year
  Sex: Female

DRUGS (1)
  1. WARFARIN [Suspect]
     Active Substance: WARFARIN
     Indication: PRODUCT USED FOR UNKNOWN INDICATION
     Route: 065

REACTIONS (6)
  - Aphasia [Unknown]
  - Cerebral haemorrhage [Unknown]
  - Hemianopia [Unknown]
  - Sensorimotor disorder [Unknown]
  - Somnolence [Unknown]
  - Hemiparesis [Unknown]
